FAERS Safety Report 4723560-X (Version None)
Quarter: 2005Q3

REPORT INFORMATION
  Report Type: 
  Country: None (occurrence: None)
  Receive Date: 20050719
  Receipt Date: 20050708
  Transmission Date: 20060218
  Serious: Yes (Other)
  Sender: FDA-Public Use
  Company Number: THYM-10615

PATIENT

DRUGS (1)
  1. THYMOGLOBULIN [Suspect]

REACTIONS (2)
  - PNEUMONITIS [None]
  - TRANSAMINASES INCREASED [None]
